FAERS Safety Report 8490895-7 (Version None)
Quarter: 2012Q2

REPORT INFORMATION
  Report Type: 
  Country: None (occurrence: None)
  Receive Date: 20120628
  Receipt Date: 20120628
  Transmission Date: 20120825
  Serious: Yes (Hospitalization)
  Sender: FDA-Public Use
  Company Number: None

PATIENT
  Sex: Female
  Weight: 63.5 kg

DRUGS (2)
  1. TAXOL [Concomitant]
     Dosage: 300 MG
     Dates: end: 20120621
  2. CARBOPLATIN [Suspect]
     Dosage: 700 MG
     Dates: end: 20120621

REACTIONS (2)
  - HIATUS HERNIA [None]
  - GASTROOESOPHAGEAL REFLUX DISEASE [None]
